FAERS Safety Report 9996450 (Version 1)
Quarter: 2014Q1

REPORT INFORMATION
  Report Type: Spontaneous
  Country: US (occurrence: None)
  Receive Date: 20140304
  Receipt Date: 20140304
  Transmission Date: 20141002
  Serious: Yes (Hospitalization, Other)
  Sender: FDA-Public Use
  Company Number: RB-59602-2013

PATIENT
  Age: 23 Year
  Sex: Male

DRUGS (4)
  1. SUBOXONE [Suspect]
     Indication: DRUG DEPENDENCE
     Dosage: (8 MG, SUBOXONE FILM SUBLINGUAL)?
     Route: 060
     Dates: start: 2012, end: 201211
  2. BUPRENORPHINE [Suspect]
     Indication: DRUG DEPENDENCE
     Dosage: (DOSING DETAILS UNKNOWN; THE PATIENT WAS GETTING DECREASING DAILY DOSES SUBLINGUAL)
     Route: 060
     Dates: start: 20130920, end: 20130926
  3. PAXIL [Concomitant]
  4. WELLBUTRIN [Concomitant]

REACTIONS (7)
  - Drug detoxification [None]
  - Drug withdrawal syndrome [None]
  - Anxiety [None]
  - Diarrhoea [None]
  - Fatigue [None]
  - Pain [None]
  - Hepatic enzyme increased [None]
